FAERS Safety Report 8305647-8 (Version None)
Quarter: 2012Q2

REPORT INFORMATION
  Report Type: 
  Country: None (occurrence: None)
  Receive Date: 20120423
  Receipt Date: 20120419
  Transmission Date: 20120825
  Serious: Yes (Other)
  Sender: FDA-Public Use
  Company Number: US-PFIZER INC-2012060354

PATIENT
  Sex: Female
  Weight: 73 kg

DRUGS (3)
  1. LEVOXYL [Suspect]
     Indication: THYROID DISORDER
     Dosage: 0.05 MG, 1X/DAY
     Route: 048
     Dates: start: 19950801, end: 19980101
  2. IRON [Concomitant]
     Indication: ANAEMIA
     Dosage: UNK
     Route: 048
  3. LEVOXYL [Suspect]
     Dosage: 0.075 MG, 1X/DAY
     Route: 048
     Dates: start: 19980101

REACTIONS (3)
  - CARDIAC DISORDER [None]
  - MALAISE [None]
  - POOR QUALITY DRUG ADMINISTERED [None]
